FAERS Safety Report 7321096-3 (Version None)
Quarter: 2011Q1

REPORT INFORMATION
  Report Type: 
  Country: None (occurrence: None)
  Receive Date: 20110228
  Receipt Date: 20110223
  Transmission Date: 20110831
  Serious: Yes (Hospitalization)
  Sender: FDA-Public Use
  Company Number: CA-MEDIMMUNE-MEDI-0012715

PATIENT
  Age: 30 Day
  Sex: Female
  Weight: 3 kg

DRUGS (1)
  1. SYNAGIS [Suspect]
     Route: 030

REACTIONS (5)
  - NASAL CONGESTION [None]
  - COUGH [None]
  - DIARRHOEA [None]
  - DEHYDRATION [None]
  - HYPOPHAGIA [None]
